FAERS Safety Report 15685339 (Version 2)
Quarter: 2019Q1

REPORT INFORMATION
  Report Type: Spontaneous
  Country: AU (occurrence: AU)
  Receive Date: 20181204
  Receipt Date: 20190121
  Transmission Date: 20190417
  Serious: Yes (Hospitalization, Other)
  Sender: FDA-Public Use
  Company Number: AU-GW PHARMA-201808AUGW0319

PATIENT

DRUGS (8)
  1. EPIDIOLEX [Suspect]
     Active Substance: CANNABIDIOL
     Indication: LENNOX-GASTAUT SYNDROME
     Dosage: 22 MG/KG, 1000 MILLIGRAM, QD
     Route: 048
     Dates: start: 20171013
  2. NITRAZEPAM [Concomitant]
     Active Substance: NITRAZEPAM
     Indication: PRODUCT USED FOR UNKNOWN INDICATION
     Dosage: 5 MILLIGRAM, EVERY NIGHT
     Route: 065
  3. VITAMIN D3 [Concomitant]
     Active Substance: CHOLECALCIFEROL
     Indication: PRODUCT USED FOR UNKNOWN INDICATION
     Dosage: 1000 U, BID
     Route: 065
  4. OXYBUTYNIN. [Concomitant]
     Active Substance: OXYBUTYNIN CHLORIDE
     Indication: PRODUCT USED FOR UNKNOWN INDICATION
     Dosage: UNK
     Route: 065
     Dates: end: 20180809
  5. VALPROATE [Concomitant]
     Active Substance: VALPROIC ACID
     Indication: PRODUCT USED FOR UNKNOWN INDICATION
     Dosage: 700 MG QD (300 MG MORNING, 400 MG AT NIGHT)
     Route: 065
  6. RUFINAMIDE [Concomitant]
     Active Substance: RUFINAMIDE
     Indication: PRODUCT USED FOR UNKNOWN INDICATION
     Dosage: 600 MILLIGRAM, BID
     Route: 065
  7. CLONIDINE. [Concomitant]
     Active Substance: CLONIDINE
     Indication: PRODUCT USED FOR UNKNOWN INDICATION
     Dosage: 200 MICROGRAM, EVERY NIGHT
     Route: 065
  8. CLOBAZAM. [Concomitant]
     Active Substance: CLOBAZAM
     Indication: PRODUCT USED FOR UNKNOWN INDICATION
     Dosage: 5 MG QD (10 MG MORNING, 15 MG AT NIGHT)
     Route: 065

REACTIONS (2)
  - Constipation [Recovered/Resolved]
  - Urinary retention [Recovered/Resolved]

NARRATIVE: CASE EVENT DATE: 20180809
